FAERS Safety Report 8362249-5 (Version None)
Quarter: 2012Q2

REPORT INFORMATION
  Report Type: 
  Country: None (occurrence: None)
  Receive Date: 20120515
  Receipt Date: 20120512
  Transmission Date: 20120825
  Serious: Yes (Death, Other)
  Sender: FDA-Public Use
  Company Number: BE-BAYER-2012-046837

PATIENT
  Age: 19 Year
  Sex: Female

DRUGS (2)
  1. AMOXICILLIN [Concomitant]
     Indication: TONSILLITIS
     Dosage: UNK
     Dates: start: 20120101, end: 20120101
  2. AVELOX [Suspect]
     Indication: MONONUCLEOSIS SYNDROME
     Dosage: UNK
     Route: 048
     Dates: start: 20120101, end: 20120101

REACTIONS (4)
  - TORSADE DE POINTES [None]
  - MALAISE [None]
  - SYNCOPE [None]
  - VOMITING [None]
